FAERS Safety Report 16212064 (Version 1)
Quarter: 2019Q2

REPORT INFORMATION
  Report Type: Spontaneous
  Country: US (occurrence: US)
  Receive Date: 20190417
  Receipt Date: 20190417
  Transmission Date: 20190711
  Serious: No
  Sender: FDA-Public Use
  Company Number: None

PATIENT
  Age: 59 Year
  Sex: Female
  Weight: 70.65 kg

DRUGS (15)
  1. VITAMIN D3 [Concomitant]
     Active Substance: CHOLECALCIFEROL
  2. TURMERIC [Concomitant]
     Active Substance: HERBALS\TURMERIC
  3. ESSENTIAL OIL [Concomitant]
  4. NAPROXEN. [Concomitant]
     Active Substance: NAPROXEN
  5. BELSOMRA [Concomitant]
     Active Substance: SUVOREXANT
  6. BUPROPION. [Concomitant]
     Active Substance: BUPROPION
  7. CUMIN. [Concomitant]
     Active Substance: CUMIN
  8. ZANTAC [Concomitant]
     Active Substance: RANITIDINE HYDROCHLORIDE
  9. VITAMIN B COMPLEX [Concomitant]
     Active Substance: CYANOCOBALAMIN\DEXPANTHENOL\NIACINAMIDE\PYRIDOXINE HYDROCHLORIDE\RIBOFLAVIN 5^-PHOSPHATE SODIUM\THIAMINE HYDROCHLORIDE\VITAMIN B COMPLEX
  10. IBUPROPHEN [Concomitant]
     Active Substance: IBUPROFEN
  11. CLONEPIN [Concomitant]
  12. MULTI VITAMIN [Concomitant]
     Active Substance: VITAMINS
  13. FLONASE [Concomitant]
     Active Substance: FLUTICASONE PROPIONATE
  14. BELSOMRA [Suspect]
     Active Substance: SUVOREXANT
     Indication: INSOMNIA
     Dosage: ?          QUANTITY:1 TABLET(S);?
     Route: 048
     Dates: start: 20190320
  15. TYLENOL [Concomitant]
     Active Substance: ACETAMINOPHEN

REACTIONS (6)
  - Sleep apnoea syndrome [None]
  - Tachycardia [None]
  - Poor quality sleep [None]
  - Fear [None]
  - Dyspnoea [None]
  - Suffocation feeling [None]

NARRATIVE: CASE EVENT DATE: 20190415
